FAERS Safety Report 19209977 (Version 2)
Quarter: 2021Q3

REPORT INFORMATION
  Report Type: Spontaneous
  Country: US (occurrence: US)
  Receive Date: 20210504
  Receipt Date: 20210703
  Transmission Date: 20211014
  Serious: Yes (Death, Other)
  Sender: FDA-Public Use
  Company Number: US-ROCHE-2823619

PATIENT
  Sex: Male

DRUGS (2)
  1. ESBRIET [Suspect]
     Active Substance: PIRFENIDONE
     Indication: IDIOPATHIC PULMONARY FIBROSIS
     Route: 048
     Dates: start: 20200830
  2. OXYGEN. [Concomitant]
     Active Substance: OXYGEN

REACTIONS (15)
  - Type 2 diabetes mellitus [Unknown]
  - Type IIa hyperlipidaemia [Unknown]
  - Leukocytosis [Unknown]
  - Tachypnoea [Unknown]
  - Congestive cardiomyopathy [Unknown]
  - Hyponatraemia [Unknown]
  - Hypophosphataemia [Unknown]
  - Death [Fatal]
  - Chronic kidney disease [Unknown]
  - Anaemia of chronic disease [Unknown]
  - Sepsis [Unknown]
  - Hypokalaemia [Unknown]
  - Cardiac failure chronic [Unknown]
  - Tachycardia [Unknown]
  - Ventricular tachycardia [Unknown]
